FAERS Safety Report 7094368-8 (Version None)
Quarter: 2010Q4

REPORT INFORMATION
  Report Type: 
  Country: None (occurrence: None)
  Receive Date: 20101110
  Receipt Date: 20101027
  Transmission Date: 20110411
  Serious: Yes (Death, Hospitalization)
  Sender: FDA-Public Use
  Company Number: US-AMGEN-USASP2010001505

PATIENT

DRUGS (16)
  1. NEUPOGEN [Suspect]
     Dosage: 5.1 A?G/KG, QD
     Route: 058
     Dates: start: 19911011, end: 19911012
  2. ZANTAC                             /00550801/ [Concomitant]
     Dosage: UNK
     Dates: start: 19911023, end: 19911023
  3. SOLU-MEDROL [Concomitant]
     Dosage: UNK
     Dates: start: 19911023
  4. ERYTHROMYCIN [Concomitant]
     Dosage: UNK
     Dates: start: 19911017, end: 19911017
  5. AMPHOTERICIN B [Concomitant]
     Dosage: UNK
     Dates: start: 19911021, end: 19911023
  6. VISTARIL [Concomitant]
     Dosage: UNK
     Dates: start: 19911020, end: 19911023
  7. VANCOMYCIN [Concomitant]
     Dosage: UNK
     Dates: start: 19911011, end: 19911024
  8. E-MYCIN 333 [Concomitant]
     Dosage: UNK
     Dates: start: 19911023, end: 19911023
  9. NEOMYCIN [Concomitant]
     Dosage: UNK
     Dates: start: 19911017, end: 19911017
  10. FORTAZ [Concomitant]
     Dosage: UNK
     Dates: start: 19911007, end: 19911024
  11. FLAGYL [Concomitant]
     Dosage: UNK
     Dates: start: 19911017, end: 19911023
  12. DIFLUCAN [Concomitant]
     Dosage: UNK
     Dates: start: 19911020, end: 19911024
  13. DEMEROL [Concomitant]
     Dosage: UNK
     Dates: start: 19911020, end: 19911023
  14. AMIKACIN [Concomitant]
     Dosage: UNK
     Dates: start: 19911007
  15. HYDREA [Concomitant]
     Dosage: 500 MG, QID
     Route: 048
     Dates: start: 19911023
  16. MORPHINE [Concomitant]
     Route: 042

REACTIONS (2)
  - CARDIO-RESPIRATORY ARREST [None]
  - LEUKOCYTOSIS [None]
